FAERS Safety Report 9799765 (Version 1)
Quarter: 2014Q1

REPORT INFORMATION
  Report Type: Spontaneous
  Country: US (occurrence: None)
  Receive Date: 20140103
  Receipt Date: 20140103
  Transmission Date: 20141002
  Serious: No
  Sender: FDA-Public Use
  Company Number: None

PATIENT
  Age: 57 Year
  Sex: Male

DRUGS (1)
  1. RIBAVIRIN 200MG [Suspect]
     Route: 048
     Dates: start: 20131129, end: 20131226

REACTIONS (1)
  - Renal impairment [None]
